FAERS Safety Report 4292753-0 (Version None)
Quarter: 2004Q1

REPORT INFORMATION
  Report Type: 
  Country: None (occurrence: None)
  Receive Date: 20040126
  Receipt Date: 20031013
  Transmission Date: 20041129
  Serious: No
  Sender: FDA-Public Use
  Company Number: USA030946286

PATIENT
  Age: 76 Year
  Sex: Female
  Weight: 57 kg

DRUGS (2)
  1. EVISTA [Suspect]
     Dates: start: 20010101, end: 20030801
  2. FORTEO [Suspect]
     Indication: OSTEOPOROSIS
     Dates: start: 20030820

REACTIONS (7)
  - ANKLE FRACTURE [None]
  - BONE DENSITY DECREASED [None]
  - FALL [None]
  - MUSCLE CRAMP [None]
  - NAUSEA [None]
  - URTICARIA [None]
  - VOMITING [None]
